FAERS Safety Report 5370577-0 (Version None)
Quarter: 2007Q2

REPORT INFORMATION
  Report Type: 
  Country: None (occurrence: None)
  Receive Date: 20070626
  Receipt Date: 20070611
  Transmission Date: 20071010
  Serious: Yes (Disabling)
  Sender: FDA-Public Use
  Company Number: JP-ELI_LILLY_AND_COMPANY-JP200702004767

PATIENT
  Age: 66 Year
  Sex: Female
  Weight: 46 kg

DRUGS (1)
  1. EVISTA [Suspect]
     Indication: OSTEOPOROSIS
     Dosage: 60 MG, DAILY (1/D)
     Route: 048
     Dates: start: 20040515, end: 20070223

REACTIONS (6)
  - ABNORMAL SENSATION IN EYE [None]
  - BREAST SWELLING [None]
  - HOT FLUSH [None]
  - HYPOAESTHESIA [None]
  - NORMAL TENSION GLAUCOMA [None]
  - OEDEMA PERIPHERAL [None]
